FAERS Safety Report 14475054 (Version 2)
Quarter: 2018Q1

REPORT INFORMATION
  Report Type: Spontaneous
  Country: US (occurrence: US)
  Receive Date: 20180201
  Receipt Date: 20180226
  Transmission Date: 20180509
  Serious: Yes (Disabling, Other)
  Sender: FDA-Public Use
  Company Number: US-PFIZER INC-2018043513

PATIENT
  Age: 76 Year
  Sex: Female
  Weight: 106.59 kg

DRUGS (18)
  1. PLAQUENIL /00072602/ [Concomitant]
     Active Substance: HYDROXYCHLOROQUINE DIPHOSPHATE
     Indication: RHEUMATOID ARTHRITIS
     Dosage: 200MG, TWICE A DAY, TABLET, BY MOUTH
     Route: 048
     Dates: start: 201410
  2. DILTIAZEM. [Concomitant]
     Active Substance: DILTIAZEM
     Indication: HYPERTENSION
     Dosage: 240MG, TABLET, DAILY, BY MOUTH
     Route: 048
     Dates: start: 2017
  3. LOSARTAN. [Concomitant]
     Active Substance: LOSARTAN
     Indication: HYPERTENSION
     Dosage: 100MG TABLET, BY MOUTH, DAILY
     Route: 048
     Dates: start: 2017
  4. ALLOPURINOL. [Concomitant]
     Active Substance: ALLOPURINOL
     Indication: GOUT
     Dosage: 100MG, 2 TABLETS DAILY, BY MOUTH
     Route: 048
     Dates: start: 2017
  5. FUROSEMIDE. [Concomitant]
     Active Substance: FUROSEMIDE
     Indication: BLOOD PRESSURE ABNORMAL
     Dosage: 20 MG DAILY, AS NEEDED, TABLET, BY MOUTH
     Route: 048
     Dates: start: 1998
  6. HUMALOG [Concomitant]
     Active Substance: INSULIN LISPRO
     Indication: TYPE 2 DIABETES MELLITUS
     Dosage: SLIDING SCALE, INJECTION, 2 TO 3 TIMES A DAY
     Dates: start: 2017
  7. XARELTO [Concomitant]
     Active Substance: RIVAROXABAN
     Indication: ATRIAL FIBRILLATION
     Dosage: 15MG A DAY, BY MOUTH, TABLET
     Route: 048
     Dates: start: 2013
  8. CLONIDINE. [Concomitant]
     Active Substance: CLONIDINE
     Indication: HYPERTENSION
     Dosage: .1MG, TABLET, DAILY, BY MOUTH
     Route: 048
     Dates: start: 2017
  9. FUROSEMIDE. [Concomitant]
     Active Substance: FUROSEMIDE
     Indication: OEDEMA
  10. XELJANZ XR [Suspect]
     Active Substance: TOFACITINIB CITRATE
     Dosage: UNK, (TOOK ONLY 30 DAYS)
     Dates: start: 201708
  11. SIMVASTATIN. [Concomitant]
     Active Substance: SIMVASTATIN
     Indication: BLOOD CHOLESTEROL INCREASED
     Dosage: 10MG, TABLET, BY MOUTH, DAILY
     Route: 048
     Dates: start: 1998
  12. LANTUS [Concomitant]
     Active Substance: INSULIN GLARGINE
     Indication: TYPE 2 DIABETES MELLITUS
     Dosage: 46 UNITS DAILY, INJECTION, IN THE AM
     Dates: start: 1995
  13. HYDRALAZINE [Concomitant]
     Active Substance: HYDRALAZINE HYDROCHLORIDE
     Indication: HYPERTENSION
     Dosage: 50MG, TABLET, TWICE A DAY, BY MOUTH
     Route: 048
     Dates: start: 2017
  14. XELJANZ XR [Suspect]
     Active Substance: TOFACITINIB CITRATE
     Indication: RHEUMATOID ARTHRITIS
     Dosage: UNK UNK, 1X/DAY
     Route: 048
     Dates: start: 2017
  15. FLECAINIDE [Concomitant]
     Active Substance: FLECAINIDE
     Indication: ATRIAL FIBRILLATION
     Dosage: 50MG TABLET, TWICE A DAY, BY MOUTH
     Route: 048
     Dates: start: 2014
  16. AMARYL [Concomitant]
     Active Substance: GLIMEPIRIDE
     Indication: TYPE 2 DIABETES MELLITUS
     Dosage: 2MG, TABLET, ONCE A DAY, BY MOUTH
     Route: 048
     Dates: start: 2013
  17. CALCITRIOL. [Concomitant]
     Active Substance: CALCITRIOL
     Indication: VITAMIN D DECREASED
     Dosage: .25MCG TWICE A WEEK, TABLET, BY MOUTH
     Route: 048
     Dates: start: 2017
  18. VITAMIN D /00107901/ [Concomitant]
     Active Substance: ERGOCALCIFEROL
     Indication: VITAMIN D DECREASED
     Dosage: 50000 UNITS, TABLET, BY MOUTH, WEEKLY
     Route: 048
     Dates: start: 2013

REACTIONS (4)
  - Drug effect incomplete [Unknown]
  - Condition aggravated [Not Recovered/Not Resolved]
  - Limb discomfort [Unknown]
  - Rheumatoid arthritis [Not Recovered/Not Resolved]

NARRATIVE: CASE EVENT DATE: 201711
